FAERS Safety Report 25394016 (Version 1)
Quarter: 2025Q2

REPORT INFORMATION
  Report Type: Spontaneous
  Country: NL (occurrence: NL)
  Receive Date: 20250604
  Receipt Date: 20250604
  Transmission Date: 20250717
  Serious: Yes (Hospitalization, Other)
  Sender: AMGEN
  Company Number: NL-AMGEN-NLDSP2025105925

PATIENT
  Age: 12 Year
  Sex: Female

DRUGS (6)
  1. ADALIMUMAB [Suspect]
     Active Substance: ADALIMUMAB
     Indication: Crohn^s disease
     Route: 065
  2. AZITHROMYCIN [Concomitant]
     Active Substance: AZITHROMYCIN
  3. METRONIDAZOLE [Concomitant]
     Active Substance: METRONIDAZOLE
  4. AZATHIOPRINE [Concomitant]
     Active Substance: AZATHIOPRINE
  5. METHOTREXATE [Concomitant]
     Active Substance: METHOTREXATE
  6. MENINGOCOCCAL POLYSACCHARIDE VACCINE A NOS [Concomitant]
     Active Substance: MENINGOCOCCAL POLYSACCHARIDE VACCINE A\NEISSERIA MENINGITIDIS GROUP A CAPSULAR POLYSACCHARIDE ANTIGE

REACTIONS (10)
  - Ascites [Recovered/Resolved]
  - Blood albumin decreased [Recovered/Resolved]
  - Diarrhoea haemorrhagic [Recovered/Resolved]
  - Paroxysmal nocturnal haemoglobinuria [Unknown]
  - Upper respiratory tract infection [Recovered/Resolved]
  - Oedema peripheral [Recovered/Resolved]
  - Face oedema [Recovered/Resolved]
  - Abdominal pain [Recovered/Resolved]
  - Nausea [Recovered/Resolved]
  - Vomiting [Recovered/Resolved]
